FAERS Safety Report 10564815 (Version 1)
Quarter: 2014Q4

REPORT INFORMATION
  Report Type: Spontaneous
  Country: FR (occurrence: FR)
  Receive Date: 20141105
  Receipt Date: 20141105
  Transmission Date: 20150529
  Serious: Yes (Hospitalization)
  Sender: FDA-Public Use
  Company Number: FR-ROCHE-1485635

PATIENT
  Age: 49 Year
  Sex: Male

DRUGS (17)
  1. SYMBICORT [Concomitant]
     Active Substance: BUDESONIDE\FORMOTEROL FUMARATE DIHYDRATE
     Dosage: 100/6 MCG ONCE DOSE
     Route: 065
  2. PREVISCAN (FRANCE) [Concomitant]
     Active Substance: FLUINDIONE
  3. TAHOR [Suspect]
     Active Substance: ATORVASTATIN CALCIUM
     Dosage: ONCE IN EVENING
     Route: 048
     Dates: start: 20140920
  4. STILNOX [Concomitant]
     Active Substance: ZOLPIDEM TARTRATE
     Dosage: AT BEDTIME
     Route: 065
     Dates: start: 20140908
  5. LOVENOX [Concomitant]
     Active Substance: ENOXAPARIN SODIUM
     Dosage: 2 INJECTIONS IN MORNING AND EVENING
     Route: 065
     Dates: start: 20140918
  6. PROCORALAN [Concomitant]
     Active Substance: IVABRADINE
     Dosage: IN MORNING
     Route: 065
  7. PLAVIX [Concomitant]
     Active Substance: CLOPIDOGREL BISULFATE
  8. RIFAMPICINE [Concomitant]
     Active Substance: RIFAMPIN
     Route: 065
     Dates: start: 20140929
  9. TAHOR [Suspect]
     Active Substance: ATORVASTATIN CALCIUM
     Indication: PRODUCT USED FOR UNKNOWN INDICATION
     Dosage: ONCE IN EVENING
     Route: 048
  10. SEROPLEX [Concomitant]
     Active Substance: ESCITALOPRAM OXALATE
     Dosage: ONE DOSE
     Route: 065
  11. KARDEGIC [Concomitant]
     Active Substance: ASPIRIN LYSINE
     Route: 065
     Dates: start: 20140918
  12. ROCEPHINE [Suspect]
     Active Substance: CEFTRIAXONE SODIUM
     Indication: PRODUCT USED FOR UNKNOWN INDICATION
     Route: 065
     Dates: start: 20140908, end: 20140920
  13. FLAGYL [Suspect]
     Active Substance: METRONIDAZOLE\METRONIDAZOLE HYDROCHLORIDE
     Indication: PRODUCT USED FOR UNKNOWN INDICATION
     Route: 065
     Dates: start: 20140908, end: 20140920
  14. TEMERIT [Concomitant]
     Active Substance: NEBIVOLOL
     Dosage: IN MORNING
     Route: 065
  15. TRIATEC (FRANCE) [Concomitant]
     Active Substance: RAMIPRIL
     Route: 065
     Dates: end: 20140920
  16. XANAX [Concomitant]
     Active Substance: ALPRAZOLAM
     Route: 065
     Dates: start: 20140908
  17. ATARAX [Concomitant]
     Active Substance: HYDROXYZINE\HYDROXYZINE HYDROCHLORIDE
     Route: 065
     Dates: start: 20140908

REACTIONS (2)
  - Cholestasis [Unknown]
  - Hepatitis [Unknown]

NARRATIVE: CASE EVENT DATE: 20140913
